FAERS Safety Report 5412110-0 (Version None)
Quarter: 2007Q3

REPORT INFORMATION
  Report Type: 
  Country: None (occurrence: None)
  Receive Date: 20070813
  Receipt Date: 20070809
  Transmission Date: 20080115
  Serious: Yes (Hospitalization)
  Sender: FDA-Public Use
  Company Number: FR-AVENTIS-200712544FR

PATIENT
  Age: 101 Year
  Sex: Male

DRUGS (3)
  1. LASILIX                            /00032601/ [Suspect]
     Route: 048
     Dates: start: 20030101, end: 20070706
  2. KAYEXALATE [Suspect]
     Route: 048
     Dates: start: 20020101, end: 20070706
  3. TAREG [Concomitant]
     Route: 048

REACTIONS (3)
  - CONFUSIONAL STATE [None]
  - FALL [None]
  - HYPOKALAEMIA [None]
